FAERS Safety Report 9017159 (Version 2)
Quarter: 2013Q1

REPORT INFORMATION
  Report Type: Spontaneous
  Country: US (occurrence: US)
  Receive Date: 20130117
  Receipt Date: 20130212
  Transmission Date: 20140127
  Serious: No
  Sender: FDA-Public Use
  Company Number: US-009507513-1301USA008401

PATIENT
  Sex: Female
  Weight: 14.06 kg

DRUGS (1)
  1. CLARITIN ORAL SOLUTION [Suspect]
     Indication: HYPERSENSITIVITY
     Dosage: UNK, UNKNOWN
     Route: 048

REACTIONS (2)
  - Accidental exposure to product by child [Unknown]
  - Overdose [Unknown]
